FAERS Safety Report 20211623 (Version 4)
Quarter: 2022Q1

REPORT INFORMATION
  Report Type: Spontaneous
  Country: US (occurrence: US)
  Receive Date: 20211221
  Receipt Date: 20220211
  Transmission Date: 20220423
  Serious: Yes (Hospitalization)
  Sender: FDA-Public Use
  Company Number: US-KARYOPHARM-2021KPT001432

PATIENT

DRUGS (13)
  1. XPOVIO [Suspect]
     Active Substance: SELINEXOR
     Indication: Glioblastoma
     Dosage: 80 MG, WEEKLY
     Route: 048
     Dates: start: 20211013, end: 20220202
  2. AMANTADINE [Concomitant]
     Active Substance: AMANTADINE
  3. ATORVASTATIN [Concomitant]
     Active Substance: ATORVASTATIN
  4. BACTRIM [Concomitant]
     Active Substance: SULFAMETHOXAZOLE\TRIMETHOPRIM
  5. BOTOX [Concomitant]
     Active Substance: ONABOTULINUMTOXINA
  6. DEXAMETHASONE [Concomitant]
     Active Substance: DEXAMETHASONE
  7. ENOXAPARIN [Concomitant]
     Active Substance: ENOXAPARIN
  8. LEVETIRACETAM [Concomitant]
     Active Substance: LEVETIRACETAM
  9. LORAZEPAM [Concomitant]
     Active Substance: LORAZEPAM
  10. MINOCYCLINE [Concomitant]
     Active Substance: MINOCYCLINE HYDROCHLORIDE
  11. ONDANSETRON [Concomitant]
     Active Substance: ONDANSETRON
  12. PROZAC [Concomitant]
     Active Substance: FLUOXETINE HYDROCHLORIDE
  13. TEMODAR [Concomitant]
     Active Substance: TEMOZOLOMIDE

REACTIONS (5)
  - Fall [Unknown]
  - Contusion [Unknown]
  - Gait disturbance [Unknown]
  - Glioblastoma [Unknown]
  - Off label use [Unknown]

NARRATIVE: CASE EVENT DATE: 20211201
